FAERS Safety Report 4977078-X (Version None)
Quarter: 2006Q2

REPORT INFORMATION
  Report Type: 
  Country: None (occurrence: None)
  Receive Date: 20060419
  Receipt Date: 20060406
  Transmission Date: 20061013
  Serious: Yes (Other)
  Sender: FDA-Public Use
  Company Number: US-AMGEN-STX175428

PATIENT
  Sex: Male

DRUGS (3)
  1. ENBREL [Suspect]
     Indication: PSORIASIS
     Route: 058
     Dates: start: 20041019
  2. ENBREL [Suspect]
  3. SORIATANE [Concomitant]

REACTIONS (4)
  - CONDITION AGGRAVATED [None]
  - HTLV-1 TEST POSITIVE [None]
  - HTLV-2 TEST POSITIVE [None]
  - PSORIASIS [None]
